FAERS Safety Report 7270920-1 (Version None)
Quarter: 2011Q1

REPORT INFORMATION
  Report Type: 
  Country: None (occurrence: None)
  Receive Date: 20110125
  Receipt Date: 20110125
  Transmission Date: 20110831
  Serious: Yes (Hospitalization)
  Sender: FDA-Public Use
  Company Number: None

PATIENT
  Sex: Female
  Weight: 74.84 kg

DRUGS (1)
  1. PROLASTIN-C [Suspect]
     Indication: ALPHA-1 ANTI-TRYPSIN DEFICIENCY
     Dosage: 4490MG WEEKLY IV
     Route: 042
     Dates: start: 20110120

REACTIONS (2)
  - DYSPNOEA [None]
  - CHEST DISCOMFORT [None]
